FAERS Safety Report 10177350 (Version 1)
Quarter: 2014Q2

REPORT INFORMATION
  Report Type: Spontaneous
  Country: US (occurrence: US)
  Receive Date: 20140516
  Receipt Date: 20140516
  Transmission Date: 20141212
  Serious: No
  Sender: FDA-Public Use
  Company Number: US-TEVA-478203USA

PATIENT
  Sex: Female

DRUGS (1)
  1. ACTIQ [Suspect]
     Indication: BACK PAIN
     Dates: end: 20140410

REACTIONS (3)
  - Drug withdrawal syndrome [Not Recovered/Not Resolved]
  - Tooth loss [Not Recovered/Not Resolved]
  - Off label use [Unknown]
